FAERS Safety Report 5794382-6 (Version None)
Quarter: 2008Q2

REPORT INFORMATION
  Report Type: 
  Country: None (occurrence: None)
  Receive Date: 20080625
  Receipt Date: 20080616
  Transmission Date: 20081010
  Serious: Yes (Other)
  Sender: FDA-Public Use
  Company Number: 2008BI007686

PATIENT
  Age: 54 Year
  Sex: Female

DRUGS (7)
  1. AVONEX [Suspect]
     Indication: MULTIPLE SCLEROSIS
     Dosage: 30 UG; QW; IM
     Route: 030
     Dates: start: 19980101
  2. PROTONIX [Concomitant]
  3. LOVASTATIN [Concomitant]
  4. LISINOPRIL [Concomitant]
  5. DEPAKOTE [Concomitant]
  6. CELEBREX [Concomitant]
  7. TEMAZEPAM [Concomitant]

REACTIONS (7)
  - ANXIETY [None]
  - ARTHRALGIA [None]
  - CEREBRAL THROMBOSIS [None]
  - DEPRESSION [None]
  - ILL-DEFINED DISORDER [None]
  - PAIN [None]
  - SKIN BURNING SENSATION [None]
